FAERS Safety Report 11688262 (Version 2)
Quarter: 2015Q4

REPORT INFORMATION
  Report Type: Spontaneous
  Country: US (occurrence: US)
  Receive Date: 20151030
  Receipt Date: 20151030
  Transmission Date: 20160304
  Serious: No
  Sender: FDA-Public Use
  Company Number: US-SPECTRUM PHARMACEUTICALS, INC.-15-B-US-00303

PATIENT
  Age: 56 Year
  Sex: Female
  Weight: 139 kg

DRUGS (1)
  1. BELEODAQ [Suspect]
     Active Substance: BELINOSTAT
     Indication: PERIPHERAL T-CELL LYMPHOMA UNSPECIFIED
     Dosage: 2300 MG, SINGLE, DAYS 1-5
     Route: 042
     Dates: start: 20150706, end: 20150706

REACTIONS (2)
  - Pain [Unknown]
  - Infusion site extravasation [Unknown]

NARRATIVE: CASE EVENT DATE: 20150709
